FAERS Safety Report 13152102 (Version 4)
Quarter: 2017Q1

REPORT INFORMATION
  Report Type: Spontaneous
  Country: US (occurrence: US)
  Receive Date: 20170125
  Receipt Date: 20170306
  Transmission Date: 20170428
  Serious: Yes (Other)
  Sender: FDA-Public Use
  Company Number: US-TEVA-732068USA

PATIENT
  Sex: Female

DRUGS (1)
  1. CLONAZEPAM. [Suspect]
     Active Substance: CLONAZEPAM
     Indication: ANXIETY
     Dosage: 8 AM, 2 PM AND 8 PM

REACTIONS (40)
  - Choking [Not Recovered/Not Resolved]
  - Drug withdrawal syndrome [Not Recovered/Not Resolved]
  - Salivary hypersecretion [Unknown]
  - Back pain [Unknown]
  - Dental caries [Unknown]
  - Vision blurred [Not Recovered/Not Resolved]
  - Dysphagia [Unknown]
  - Dizziness [Unknown]
  - Constipation [Unknown]
  - Vitreous floaters [Unknown]
  - Dysarthria [Not Recovered/Not Resolved]
  - Nightmare [Unknown]
  - Tongue discomfort [Unknown]
  - Hyperacusis [Unknown]
  - Tremor [Unknown]
  - Pain in extremity [Unknown]
  - Dysgeusia [Not Recovered/Not Resolved]
  - Anxiety [Unknown]
  - Lip swelling [Unknown]
  - Abdominal pain upper [Unknown]
  - Flushing [Unknown]
  - Drug ineffective [Unknown]
  - Photophobia [Unknown]
  - Sensory disturbance [Unknown]
  - Nervousness [Unknown]
  - Memory impairment [Unknown]
  - Panic attack [Unknown]
  - Confusional state [Unknown]
  - Agitation [Unknown]
  - Muscular weakness [Unknown]
  - Parosmia [Unknown]
  - Ageusia [Not Recovered/Not Resolved]
  - Feeling of body temperature change [Not Recovered/Not Resolved]
  - Dyspraxia [Unknown]
  - Disturbance in attention [Unknown]
  - Sleep disorder [Unknown]
  - Hypoaesthesia oral [Not Recovered/Not Resolved]
  - Cough [Not Recovered/Not Resolved]
  - Pain in jaw [Unknown]
  - Toothache [Unknown]

NARRATIVE: CASE EVENT DATE: 2016
